FAERS Safety Report 8119839-4 (Version None)
Quarter: 2012Q1

REPORT INFORMATION
  Report Type: 
  Country: None (occurrence: None)
  Receive Date: 20120206
  Receipt Date: 20120206
  Transmission Date: 20120608
  Serious: Yes (Disabling, Other)
  Sender: FDA-Public Use
  Company Number: None

PATIENT
  Age: 68 Year
  Sex: Male
  Weight: 83.9154 kg

DRUGS (1)
  1. ADALAT [Suspect]
     Indication: HYPERTENSION
     Dosage: 30 MG ER 1 DAILY ORAL
     Route: 048
     Dates: start: 19850101

REACTIONS (3)
  - OSTEOARTHRITIS [None]
  - ARTHRALGIA [None]
  - MALABSORPTION [None]
